FAERS Safety Report 16978025 (Version 2)
Quarter: 2019Q4

REPORT INFORMATION
  Report Type: Report from Study
  Country: US (occurrence: US)
  Receive Date: 20191031
  Receipt Date: 20191128
  Transmission Date: 20200122
  Serious: Yes (Death, Life-Threatening, Hospitalization, Other)
  Sender: FDA-Public Use
  Company Number: US-BRISTOL-MYERS SQUIBB COMPANY-BMS-2019-103239

PATIENT
  Age: 52 Year
  Sex: Female
  Weight: 102.1 kg

DRUGS (2)
  1. NIVOLUMAB [Suspect]
     Active Substance: NIVOLUMAB
     Indication: ACUTE MYELOID LEUKAEMIA RECURRENT
     Dosage: 98 MILLIGRAM, Q2WK
     Route: 042
     Dates: start: 20191009, end: 20191023
  2. CYCLOPHOSPHAMIDE. [Suspect]
     Active Substance: CYCLOPHOSPHAMIDE
     Indication: ACUTE MYELOID LEUKAEMIA RECURRENT
     Dosage: 350 MILLIGRAM, QWK
     Route: 048
     Dates: start: 20191009, end: 20191023

REACTIONS (4)
  - Febrile neutropenia [Unknown]
  - Pulmonary oedema [Unknown]
  - Pyrexia [Unknown]
  - Pulseless electrical activity [Fatal]

NARRATIVE: CASE EVENT DATE: 20191023
